FAERS Safety Report 7237908-8 (Version None)
Quarter: 2011Q1

REPORT INFORMATION
  Report Type: 
  Country: None (occurrence: None)
  Receive Date: 20110121
  Receipt Date: 20110113
  Transmission Date: 20110831
  Serious: Yes (Other)
  Sender: FDA-Public Use
  Company Number: US-MYLANLABS-2010S1018774

PATIENT
  Age: 18 Year
  Sex: Female

DRUGS (3)
  1. AMNESTEEM [Suspect]
     Route: 048
     Dates: end: 20101009
  2. CLARAVIS [Suspect]
     Route: 048
     Dates: start: 20100801
  3. ORAL CONTRACEPTIVE NOS [Concomitant]
     Indication: CONTRACEPTION
     Route: 048

REACTIONS (2)
  - DRUG EXPOSURE DURING PREGNANCY [None]
  - VAGINAL HAEMORRHAGE [None]
